FAERS Safety Report 16343289 (Version 8)
Quarter: 2020Q2

REPORT INFORMATION
  Report Type: Report from Study
  Country: US (occurrence: US)
  Receive Date: 20190522
  Receipt Date: 20200629
  Transmission Date: 20200713
  Serious: Yes (Hospitalization, Other)
  Sender: FDA-Public Use
  Company Number: US-ACTELION-A-NJ2019-190677

PATIENT
  Sex: Female
  Weight: 65.76 kg

DRUGS (3)
  1. VELETRI [Suspect]
     Active Substance: EPOPROSTENOL
     Dosage: 43.7 NG/KG, PER MIN
     Route: 042
  2. WARFARIN [Concomitant]
     Active Substance: WARFARIN
  3. VELETRI [Suspect]
     Active Substance: EPOPROSTENOL
     Indication: PULMONARY ARTERIAL HYPERTENSION
     Dosage: 44.4 NG/KG, PER MIN
     Route: 042

REACTIONS (17)
  - Hospitalisation [Unknown]
  - Neuropathy peripheral [Unknown]
  - Sinusitis [Not Recovered/Not Resolved]
  - Tachycardia [Unknown]
  - Dyspnoea exertional [Not Recovered/Not Resolved]
  - Dyspnoea [Unknown]
  - Thyroid disorder [Unknown]
  - Chest pain [Not Recovered/Not Resolved]
  - Vomiting [Unknown]
  - Nausea [Unknown]
  - Pneumonia [Unknown]
  - Fluid retention [Unknown]
  - Headache [Unknown]
  - Hyperthyroidism [Not Recovered/Not Resolved]
  - Diarrhoea [Unknown]
  - Palpitations [Not Recovered/Not Resolved]
  - Pain in jaw [Unknown]
